FAERS Safety Report 7552758-0 (Version None)
Quarter: 2011Q2

REPORT INFORMATION
  Report Type: 
  Country: None (occurrence: None)
  Receive Date: 20110616
  Receipt Date: 20110418
  Transmission Date: 20111010
  Serious: No
  Sender: FDA-Public Use
  Company Number: US-ABBOTT-11P-163-0719730-00

PATIENT
  Sex: Female
  Weight: 54.026 kg

DRUGS (6)
  1. DILTIAZEM [Concomitant]
     Indication: HYPERTENSION
  2. TRILIPIX [Suspect]
     Indication: BLOOD CHOLESTEROL INCREASED
     Dates: start: 20101101
  3. GLIPIZIDE [Concomitant]
     Indication: DIABETES MELLITUS
  4. DIOVAN [Concomitant]
     Indication: HYPERTENSION
  5. ASPIRIN [Concomitant]
     Indication: CARDIOVASCULAR EVENT PROPHYLAXIS
  6. DEXILANT [Concomitant]
     Indication: GASTROOESOPHAGEAL REFLUX DISEASE

REACTIONS (3)
  - MUSCLE ATROPHY [None]
  - ALOPECIA [None]
  - NAUSEA [None]
